FAERS Safety Report 21802249 (Version 1)
Quarter: 2022Q4

REPORT INFORMATION
  Report Type: Report from Study
  Country: US (occurrence: US)
  Receive Date: 20221230
  Receipt Date: 20221230
  Transmission Date: 20230113
  Serious: No
  Sender: FDA-Public Use
  Company Number: US-ACORDA-ACO_172990_2022

PATIENT
  Age: 76 Year
  Sex: Male

DRUGS (4)
  1. INBRIJA [Suspect]
     Active Substance: LEVODOPA
     Indication: Parkinson^s disease
     Dosage: 2 DOSAGE FORM (84 MG), PRN (NOT TO EXCEED 5 DOSES A DAY)
     Dates: start: 20220712
  2. INBRIJA [Suspect]
     Active Substance: LEVODOPA
     Indication: On and off phenomenon
  3. CARBIDOPA\LEVODOPA [Concomitant]
     Active Substance: CARBIDOPA\LEVODOPA
     Indication: Product used for unknown indication
     Dosage: 3 PILLS IN THE MORNING, 2 PILLS AT 11:00, 2 PILLS AT 3:00, 3 PILLS AT 4, 2 PILLS AT BEDTIME, 5X/QD
     Route: 065
  4. PRAMIPEXOLE [Concomitant]
     Active Substance: PRAMIPEXOLE
     Indication: Product used for unknown indication
     Dosage: 2 PILLS IN THE MORNING, 3 PILLS AT 4, 2 PILLS AT 10 PM, TID
     Route: 065

REACTIONS (4)
  - Therapeutic product effect incomplete [Unknown]
  - Device use issue [Unknown]
  - Throat irritation [Not Recovered/Not Resolved]
  - Drug ineffective [Unknown]

NARRATIVE: CASE EVENT DATE: 20220712
